FAERS Safety Report 5358347-0 (Version None)
Quarter: 2007Q2

REPORT INFORMATION
  Report Type: 
  Country: None (occurrence: None)
  Receive Date: 20070530
  Receipt Date: 20070301
  Transmission Date: 20071010
  Serious: Yes (Other)
  Sender: FDA-Public Use
  Company Number: US200601003917

PATIENT
  Age: 26 Year
  Sex: Female
  Weight: 70.3 kg

DRUGS (3)
  1. ZYPREXA [Suspect]
     Indication: DEPRESSION
     Dates: start: 20000101, end: 20000501
  2. SEROQUEL [Concomitant]
  3. RISPERDAL [Concomitant]

REACTIONS (2)
  - DIABETES MELLITUS NON-INSULIN-DEPENDENT [None]
  - PANCREATITIS [None]
